FAERS Safety Report 11591172 (Version 1)
Quarter: 2015Q4

REPORT INFORMATION
  Report Type: Spontaneous
  Country: US (occurrence: US)
  Receive Date: 20151003
  Receipt Date: 20151003
  Transmission Date: 20160304
  Serious: No
  Sender: FDA-Public Use
  Company Number: US-B.I. PHARMACEUTICALS,INC./RIDGEFIELD-2015-BI-50631BP

PATIENT
  Age: 76 Year
  Sex: Female
  Weight: 61 kg

DRUGS (3)
  1. METOPROLOL [Concomitant]
     Active Substance: METOPROLOL
     Indication: HYPERTENSION
     Dosage: FORMULATION: CAPLET
     Route: 048
     Dates: start: 201411
  2. ZOCOR [Concomitant]
     Active Substance: SIMVASTATIN
     Indication: BLOOD CHOLESTEROL INCREASED
     Dosage: 20 MCG
     Route: 048
  3. SPIRIVA [Suspect]
     Active Substance: TIOTROPIUM BROMIDE MONOHYDRATE
     Indication: EMPHYSEMA
     Dosage: 2.5 MCG
     Route: 055
     Dates: start: 201506

REACTIONS (2)
  - Dysphonia [Unknown]
  - Bronchitis [Recovered/Resolved]

NARRATIVE: CASE EVENT DATE: 201506
